FAERS Safety Report 24114454 (Version 4)
Quarter: 2025Q1

REPORT INFORMATION
  Report Type: Report from Study
  Country: CN (occurrence: CN)
  Receive Date: 20240720
  Receipt Date: 20250304
  Transmission Date: 20250409
  Serious: Yes (Hospitalization)
  Sender: RANBAXY
  Company Number: CN-SUN PHARMACEUTICAL INDUSTRIES LTD-2024R1-456692

PATIENT
  Age: 67 Year
  Sex: Male

DRUGS (18)
  1. SONIDEGIB [Suspect]
     Active Substance: SONIDEGIB
     Indication: Basal cell carcinoma
     Dosage: 200 MILLIGRAM, QD
     Route: 048
     Dates: start: 20240328, end: 20240705
  2. VALSARTAN [Concomitant]
     Active Substance: VALSARTAN
     Indication: Hypertension
     Dosage: 80 MILLIGRAM, QD
     Route: 048
     Dates: start: 2004
  3. INDAPAMIDE [Concomitant]
     Active Substance: INDAPAMIDE
     Indication: Hypertension
     Dosage: 2.5 MILLIGRAM, QD
     Route: 048
     Dates: start: 2004
  4. EZETIMIBE [Concomitant]
     Active Substance: EZETIMIBE
     Indication: Hyperlipidaemia
     Dosage: 10 MILLIGRAM, QD
     Route: 048
     Dates: start: 20240328
  5. ALPRAZOLAM [Concomitant]
     Active Substance: ALPRAZOLAM
     Indication: Insomnia
     Dosage: 0.4 MILLIGRAM, QD
     Route: 048
     Dates: start: 202404
  6. PREGABALIN [Concomitant]
     Active Substance: PREGABALIN
     Indication: Herpes zoster
     Dosage: 150 MILLIGRAM, BID
     Route: 048
     Dates: start: 20240510
  7. GABAPENTIN [Concomitant]
     Active Substance: GABAPENTIN
     Indication: Herpes zoster
     Dosage: 0.1 GRAM, TID
     Route: 048
     Dates: start: 20240510
  8. METHYLCOBALAMIN [Concomitant]
     Active Substance: METHYLCOBALAMIN
     Indication: Herpes zoster
     Dosage: 0.5 GRAM, TID
     Route: 048
     Dates: start: 20240519
  9. VITAMIN B1 [Concomitant]
     Active Substance: THIAMINE HYDROCHLORIDE
     Indication: Herpes zoster
     Route: 048
     Dates: start: 20240519
  10. CHLORPHENIRAMINE MALEATE [Concomitant]
     Active Substance: CHLORPHENIRAMINE MALEATE
     Indication: Cardiovascular event prophylaxis
     Route: 048
     Dates: start: 2022
  11. FOLIC ACID [Concomitant]
     Active Substance: FOLIC ACID
     Indication: Prophylaxis
     Route: 048
     Dates: start: 2021
  12. Panax quinquefolius [Concomitant]
     Indication: Cardiovascular event prophylaxis
     Route: 048
     Dates: start: 2017
  13. Sanqi [Concomitant]
     Indication: Cardiovascular event prophylaxis
     Route: 048
     Dates: start: 2017
  14. CLOPIDOGREL BISULFATE [Concomitant]
     Active Substance: CLOPIDOGREL BISULFATE
     Indication: Cardiovascular event prophylaxis
     Route: 048
     Dates: start: 2022
  15. HERBALS\PANAX NOTOGINSENG ROOT EXTRACT [Concomitant]
     Active Substance: HERBALS\PANAX NOTOGINSENG ROOT EXTRACT
     Indication: Cardiovascular event prophylaxis
     Dosage: UNK, QD
     Route: 048
     Dates: start: 2017
  16. TIZANIDINE HYDROCHLORIDE [Concomitant]
     Active Substance: TIZANIDINE HYDROCHLORIDE
     Indication: Osteoporosis
     Dosage: 2 MILLIGRAM, TID
     Route: 048
     Dates: start: 20240701, end: 20240714
  17. Xian ling gu bao [Concomitant]
     Indication: Osteoporosis
     Dosage: 1.5 GRAM, BID
     Route: 048
     Dates: start: 20240701, end: 20240714
  18. LIDOCAINE HYDROCHLORIDE [Concomitant]
     Active Substance: LIDOCAINE HYDROCHLORIDE
     Indication: Anaesthesia
     Route: 030
     Dates: start: 202406, end: 202407

REACTIONS (1)
  - Post herpetic neuralgia [Recovered/Resolved]

NARRATIVE: CASE EVENT DATE: 20240703
